FAERS Safety Report 24766227 (Version 2)
Quarter: 2025Q2

REPORT INFORMATION
  Report Type: Spontaneous
  Country: ES (occurrence: ES)
  Receive Date: 20241223
  Receipt Date: 20250627
  Transmission Date: 20250717
  Serious: Yes (Other)
  Sender: SANDOZ
  Company Number: ES-SANDOZ-SDZ2024ES104581

PATIENT
  Age: 35 Year
  Sex: Male

DRUGS (8)
  1. BUSULFAN [Suspect]
     Active Substance: BUSULFAN
     Indication: Bone marrow conditioning regimen
     Dosage: 3.2 MG/KG, QD
     Route: 042
  2. CYCLOPHOSPHAMIDE [Suspect]
     Active Substance: CYCLOPHOSPHAMIDE
     Indication: Prophylaxis against graft versus host disease
     Dosage: 50 MG/KG, QD (DAYS PLUS 3 AND PLUS 4)
     Route: 065
  3. FLUDARABINE [Suspect]
     Active Substance: FLUDARABINE PHOSPHATE
     Indication: Bone marrow conditioning regimen
     Route: 065
  4. MYCOPHENOLATE MOFETIL [Suspect]
     Active Substance: MYCOPHENOLATE MOFETIL
     Indication: Prophylaxis against graft versus host disease
     Route: 065
  5. MESNA [Suspect]
     Active Substance: MESNA
     Indication: Prophylaxis against graft versus host disease
     Route: 065
  6. URSODIOL [Suspect]
     Active Substance: URSODIOL
     Indication: Prophylaxis
     Route: 065
  7. URSODIOL [Suspect]
     Active Substance: URSODIOL
     Indication: Venoocclusive disease
  8. URSODIOL [Suspect]
     Active Substance: URSODIOL
     Indication: Venoocclusive liver disease

REACTIONS (1)
  - Venoocclusive disease [Recovered/Resolved]
